FAERS Safety Report 25755043 (Version 1)
Quarter: 2025Q3

REPORT INFORMATION
  Report Type: Spontaneous
  Country: US (occurrence: US)
  Receive Date: 20250903
  Receipt Date: 20250903
  Transmission Date: 20251021
  Serious: Yes (Hospitalization)
  Sender: RADIUS PHARM
  Company Number: US-RADIUS HEALTH INC.-US-RADIUS-25050922

PATIENT
  Sex: Female
  Weight: 40.816 kg

DRUGS (7)
  1. TYMLOS [Suspect]
     Active Substance: ABALOPARATIDE
     Indication: Senile osteoporosis
     Dosage: 80 MICROGRAM, QD, INTO THE THIGH
     Route: 058
     Dates: start: 202504, end: 20250703
  2. TYMLOS [Suspect]
     Active Substance: ABALOPARATIDE
     Indication: Arthritis
     Route: 058
     Dates: end: 2025
  3. TYMLOS [Suspect]
     Active Substance: ABALOPARATIDE
     Indication: Bronchiectasis
  4. TYMLOS [Suspect]
     Active Substance: ABALOPARATIDE
     Indication: Illness
  5. TERIPARATIDE [Concomitant]
     Active Substance: TERIPARATIDE
     Indication: Product used for unknown indication
  6. PRIMATENE [EPINEPHRINE] [Concomitant]
     Indication: Product used for unknown indication
  7. ALBUTEROL SULFATE [Concomitant]
     Active Substance: ALBUTEROL SULFATE
     Indication: Product used for unknown indication

REACTIONS (11)
  - Blood pressure systolic increased [Recovered/Resolved]
  - Chest pain [Not Recovered/Not Resolved]
  - Headache [Not Recovered/Not Resolved]
  - Arthritis [Recovering/Resolving]
  - Back pain [Recovered/Resolved]
  - Dizziness [Recovered/Resolved]
  - Vertigo [Recovered/Resolved]
  - Palpitations [Not Recovered/Not Resolved]
  - Fatigue [Recovered/Resolved]
  - Product administered at inappropriate site [Unknown]
  - Product use in unapproved indication [Unknown]

NARRATIVE: CASE EVENT DATE: 20250101
